FAERS Safety Report 5943449-8 (Version None)
Quarter: 2008Q4

REPORT INFORMATION
  Report Type: 
  Country: None (occurrence: None)
  Receive Date: 20081106
  Receipt Date: 20081028
  Transmission Date: 20090506
  Serious: Yes (Life-Threatening, Hospitalization)
  Sender: FDA-Public Use
  Company Number: GB-WATSON-2008-06401

PATIENT
  Age: 36 Year
  Sex: Female

DRUGS (2)
  1. FIORINAL WITH CODEINE 50/325/40/30 (WATSON LABORATORIES) [Suspect]
     Indication: BACK PAIN
     Dosage: 12.8 MG PER TABLET (UP TO 8 TABLETS/D)
     Route: 048
  2. IBUPROFEN [Suspect]
     Indication: BACK PAIN
     Dosage: 200 MG/ TABLET (UP TO 8 TABLETS/D)
     Route: 048

REACTIONS (1)
  - HYPOKALAEMIA [None]
